FAERS Safety Report 11315580 (Version 3)
Quarter: 2015Q4

REPORT INFORMATION
  Report Type: Spontaneous
  Country: TW (occurrence: TW)
  Receive Date: 20150728
  Receipt Date: 20151216
  Transmission Date: 20160304
  Serious: Yes (Death, Hospitalization, Other)
  Sender: FDA-Public Use
  Company Number: TW-AMGEN-TWNSP2015073462

PATIENT
  Age: 89 Year
  Sex: Male
  Weight: 78.6 kg

DRUGS (14)
  1. SENNOSIDE B [Concomitant]
     Active Substance: SENNOSIDE B
     Dosage: 12 MG, DAILY
     Dates: start: 20150320, end: 20150326
  2. ASPIRIN                            /00002701/ [Concomitant]
     Active Substance: ASPIRIN
     Dosage: UNK
  3. S-60 [Concomitant]
     Dosage: 1 G, DAILY
     Dates: start: 20150319, end: 20150326
  4. CORALAN [Suspect]
     Active Substance: IVABRADINE HYDROCHLORIDE
     Indication: HEART RATE INCREASED
  5. CORALAN [Suspect]
     Active Substance: IVABRADINE HYDROCHLORIDE
     Indication: CARDIAC FAILURE CHRONIC
     Dosage: 5 MG, BID
     Route: 048
     Dates: start: 20150324, end: 20150326
  6. ACETAMINOPHEN. [Concomitant]
     Active Substance: ACETAMINOPHEN
     Dosage: 500 MG, DAILY
     Dates: start: 20150323, end: 20150326
  7. ALDACTIN [Concomitant]
     Dosage: 25 MG, DAILY
     Dates: start: 20150323, end: 20150326
  8. VALSARTAN. [Concomitant]
     Active Substance: VALSARTAN
     Dosage: UNK
  9. CORALAN [Suspect]
     Active Substance: IVABRADINE HYDROCHLORIDE
     Indication: PRODUCT USE ISSUE
  10. CASODEX [Concomitant]
     Active Substance: BICALUTAMIDE
     Dosage: 50 MG, DAILY
     Dates: start: 20150320, end: 20150326
  11. KASCOAL [Concomitant]
     Dosage: 40 MG, DAILY
     Dates: start: 20150320, end: 20150326
  12. IPRATRAN [Concomitant]
     Dosage: 500 MUG, QD
     Dates: start: 20150323, end: 20150326
  13. MAGNESIUM OXIDE. [Concomitant]
     Active Substance: MAGNESIUM OXIDE
     Dosage: 250 MG, DAILY
     Dates: start: 20150320, end: 20150326
  14. LANOXIN [Concomitant]
     Active Substance: DIGOXIN
     Dosage: 0.25 MG, DAILY
     Dates: end: 20150326

REACTIONS (9)
  - Ventricular fibrillation [Fatal]
  - Ventricular tachycardia [Unknown]
  - Troponin increased [Unknown]
  - Blood creatine phosphokinase MB increased [Unknown]
  - N-terminal prohormone brain natriuretic peptide increased [Unknown]
  - Heart rate decreased [Unknown]
  - Ventricular extrasystoles [Unknown]
  - Torsade de pointes [Unknown]
  - Syncope [Unknown]

NARRATIVE: CASE EVENT DATE: 2015
